FAERS Safety Report 20375891 (Version 1)
Quarter: 2022Q1

REPORT INFORMATION
  Report Type: Spontaneous
  Country: US (occurrence: US)
  Receive Date: 20220125
  Receipt Date: 20220125
  Transmission Date: 20220424
  Serious: No
  Sender: FDA-Public Use
  Company Number: US-ANTARES PHARMA, INC.-2021-SPO-SU-0637

PATIENT

DRUGS (1)
  1. SUMATRIPTAN [Suspect]
     Active Substance: SUMATRIPTAN
     Indication: Cluster headache
     Dosage: UNK, PRN
     Route: 058

REACTIONS (5)
  - Product dose omission issue [Unknown]
  - Inappropriate schedule of product administration [Unknown]
  - Extra dose administered [Unknown]
  - Accidental exposure to product [Unknown]
  - Feeling abnormal [Unknown]
